FAERS Safety Report 5311294-2 (Version None)
Quarter: 2007Q2

REPORT INFORMATION
  Report Type: 
  Country: None (occurrence: None)
  Receive Date: 20070430
  Receipt Date: 20070419
  Transmission Date: 20071010
  Serious: Yes (Hospitalization)
  Sender: FDA-Public Use
  Company Number: PHBS2007US07100

PATIENT
  Age: 50 Year
  Sex: Female

DRUGS (6)
  1. PAMIDRONATE DISODIUM [Suspect]
     Dosage: 90 MG
     Route: 042
     Dates: end: 20030301
  2. INTERFERON ALFA [Suspect]
     Dosage: 5 MILLION UNITS/TWICE A WEEK
     Dates: start: 20030401, end: 20040401
  3. CAD [Concomitant]
  4. DCEP [Concomitant]
  5. MELPHALAN [Concomitant]
     Dosage: 200 MG/M2
  6. ZOLEDRONATE [Suspect]
     Indication: HYPERCALCAEMIA OF MALIGNANCY
     Dosage: 4 MG MONTHLY
     Route: 042
     Dates: start: 20030301, end: 20041001

REACTIONS (10)
  - BIOPSY BONE MARROW ABNORMAL [None]
  - BLOOD CREATININE INCREASED [None]
  - BLOOD UREA INCREASED [None]
  - GLOMERULONEPHROPATHY [None]
  - HAEMOGLOBIN DECREASED [None]
  - NEPHRITIS INTERSTITIAL [None]
  - NEPHROSCLEROSIS [None]
  - PLASMA CELLS INCREASED [None]
  - PROTEINURIA [None]
  - RENAL FAILURE [None]
